FAERS Safety Report 19194357 (Version 2)
Quarter: 2021Q2

REPORT INFORMATION
  Report Type: Report from Study
  Country: TW (occurrence: TW)
  Receive Date: 20210429
  Receipt Date: 20210507
  Transmission Date: 20210717
  Serious: Yes (Other)
  Sender: FDA-Public Use
  Company Number: TW-REGENERON PHARMACEUTICALS, INC.-2021-46344

PATIENT

DRUGS (2)
  1. EYLEA [Suspect]
     Active Substance: AFLIBERCEPT
     Indication: METAMORPHOPSIA
     Dosage: 0.05 ML, ONCE (LAST INJECTION)
     Route: 031
     Dates: start: 20210423
  2. EYLEA [Suspect]
     Active Substance: AFLIBERCEPT
     Indication: NEOVASCULAR AGE-RELATED MACULAR DEGENERATION
     Dosage: 0.05 ML, ONCE (RECEIVED A TOTAL OF 8 INJECTION)
     Route: 031
     Dates: start: 201911

REACTIONS (3)
  - Product prescribing issue [Unknown]
  - Eye haemorrhage [Recovering/Resolving]
  - Inappropriate schedule of product administration [Unknown]

NARRATIVE: CASE EVENT DATE: 20210326
